FAERS Safety Report 10752176 (Version 1)
Quarter: 2015Q1

REPORT INFORMATION
  Report Type: Spontaneous
  Country: US (occurrence: None)
  Receive Date: 20150129
  Receipt Date: 20150129
  Transmission Date: 20150721
  Serious: No
  Sender: FDA-Public Use
  Company Number: None

PATIENT
  Age: 13 Year
  Sex: Male
  Weight: 60.78 kg

DRUGS (2)
  1. GUANFACINE ER [Suspect]
     Active Substance: GUANFACINE
     Indication: ATTENTION DEFICIT/HYPERACTIVITY DISORDER
     Route: 048
     Dates: start: 201411, end: 201501
  2. GUANFACINE ER [Suspect]
     Active Substance: GUANFACINE
     Route: 048
     Dates: start: 201411, end: 201501

REACTIONS (3)
  - Product substitution issue [None]
  - Drug effect decreased [None]
  - Educational problem [None]

NARRATIVE: CASE EVENT DATE: 201411
